FAERS Safety Report 10356747 (Version 3)
Quarter: 2014Q3

REPORT INFORMATION
  Report Type: Spontaneous
  Country: US (occurrence: US)
  Receive Date: 20140801
  Receipt Date: 20140909
  Transmission Date: 20150326
  Serious: Yes (Death, Hospitalization, Other)
  Sender: FDA-Public Use
  Company Number: US-ROCHE-1439963

PATIENT
  Age: 75 Year
  Sex: Male

DRUGS (8)
  1. AVASTIN [Suspect]
     Active Substance: BEVACIZUMAB
     Indication: GLIOBLASTOMA
     Dosage: ONE INFUSION APPROX EARLY TO MID MAY
     Route: 065
     Dates: start: 201405
  2. LOSARTAN [Concomitant]
     Active Substance: LOSARTAN
     Indication: BLOOD PRESSURE
  3. KEPPRA [Concomitant]
     Active Substance: LEVETIRACETAM
     Indication: CONVULSION
  4. WARFARIN [Concomitant]
     Active Substance: WARFARIN
     Indication: THROMBOSIS
     Route: 065
     Dates: start: 201401
  5. TEMODAR [Concomitant]
     Active Substance: TEMOZOLOMIDE
     Indication: GLIOBLASTOMA
     Route: 048
     Dates: start: 201312, end: 201401
  6. LEVEMIR [Concomitant]
     Active Substance: INSULIN DETEMIR
     Indication: DIABETES MELLITUS
     Dosage: AT NIGHT
     Route: 065
  7. NOVOLOG [Concomitant]
     Active Substance: INSULIN ASPART
     Indication: DIABETES MELLITUS
     Dosage: SLIDING SCALE; START AFTER CRANIOTOMY/STEROIDS
     Route: 065
  8. TEMODAR [Concomitant]
     Active Substance: TEMOZOLOMIDE
     Dosage: MAINTENANCE DOSE, 5 DAYS ON AND SO MANY DAYS OFF
     Route: 065
     Dates: start: 2014, end: 2014

REACTIONS (14)
  - Device malfunction [Fatal]
  - Cerebral haemorrhage [Unknown]
  - Arthritis [Unknown]
  - International normalised ratio increased [Unknown]
  - Groin pain [Unknown]
  - Large intestine perforation [Fatal]
  - Renal disorder [Unknown]
  - Convulsion [Fatal]
  - Sepsis [Fatal]
  - Back pain [Unknown]
  - Retroperitoneal abscess [Fatal]
  - Medical device complication [Fatal]
  - Fall [Unknown]
  - Decreased appetite [Not Recovered/Not Resolved]

NARRATIVE: CASE EVENT DATE: 201405
